FAERS Safety Report 24105418 (Version 1)
Quarter: 2024Q3

REPORT INFORMATION
  Report Type: Spontaneous
  Country: US (occurrence: None)
  Receive Date: 20240716
  Receipt Date: 20240716
  Transmission Date: 20241017
  Serious: Yes (Other)
  Sender: Public
  Company Number: None

PATIENT
  Age: 26 Year
  Sex: Male
  Weight: 83.25 kg

DRUGS (9)
  1. PAXLOVID [Suspect]
     Active Substance: NIRMATRELVIR\RITONAVIR
     Indication: COVID-19
     Dates: start: 20240703, end: 20240708
  2. SERTRALINE [Concomitant]
  3. PREGABALIN [Concomitant]
  4. hydrozyzine [Concomitant]
  5. DESCOVY [Concomitant]
     Active Substance: EMTRICITABINE\TENOFOVIR ALAFENAMIDE FUMARATE
  6. TESTOSTERONE CYPIONATE [Concomitant]
     Active Substance: TESTOSTERONE CYPIONATE
  7. Advil [Concomitant]
  8. TYLENOL [Concomitant]
  9. robittusin [Concomitant]

REACTIONS (2)
  - COVID-19 [None]
  - Breakthrough COVID-19 [None]

NARRATIVE: CASE EVENT DATE: 20240716
